FAERS Safety Report 5089318-X (Version None)
Quarter: 2006Q3

REPORT INFORMATION
  Report Type: 
  Country: None (occurrence: None)
  Receive Date: 20060822
  Receipt Date: 20060801
  Transmission Date: 20061208
  Serious: Yes (Hospitalization, Other)
  Sender: FDA-Public Use
  Company Number: US200607002424

PATIENT
  Age: 57 Year
  Sex: Male
  Weight: 86.2 kg

DRUGS (3)
  1. ALIMTA [Suspect]
     Indication: NON-SMALL CELL LUNG CANCER
     Dosage: 500 MG/M2
     Dates: start: 20060320
  2. CYANOCOBALAMIN [Concomitant]
  3. FOLIC AID (FOLIC ACID) [Concomitant]

REACTIONS (5)
  - METASTASES TO ADRENALS [None]
  - NAUSEA [None]
  - RENAL FAILURE ACUTE [None]
  - SMALL INTESTINAL OBSTRUCTION [None]
  - VOMITING [None]
